FAERS Safety Report 9571740 (Version 1)
Quarter: 2013Q4

REPORT INFORMATION
  Report Type: Spontaneous
  Country: US (occurrence: US)
  Receive Date: 20131001
  Receipt Date: 20131001
  Transmission Date: 20140711
  Serious: No
  Sender: FDA-Public Use
  Company Number: US-BIOGENIDEC-2013BI065802

PATIENT
  Age: 60 Year
  Sex: Female

DRUGS (15)
  1. TECFIDERA [Suspect]
     Indication: MULTIPLE SCLEROSIS
     Route: 048
     Dates: start: 20130427
  2. TECFIDERA [Suspect]
     Indication: MULTIPLE SCLEROSIS
     Route: 048
     Dates: start: 20130504
  3. ANTABUSE [Concomitant]
  4. BACLOFEN [Concomitant]
  5. VAGIFEM [Concomitant]
  6. ZYPREXA [Concomitant]
  7. GABAPENTIN [Concomitant]
  8. SIMVASTATIN [Concomitant]
  9. ESTRING [Concomitant]
  10. AMPYRA [Concomitant]
  11. SERTALINE [Concomitant]
  12. TIZANIDINE [Concomitant]
  13. CLONAZEPAM [Concomitant]
  14. LORAZEPAM [Concomitant]
  15. ADVAIR [Concomitant]

REACTIONS (1)
  - Prescribed underdose [Unknown]
